FAERS Safety Report 26180426 (Version 1)
Quarter: 2025Q4

REPORT INFORMATION
  Report Type: Spontaneous
  Country: US (occurrence: US)
  Receive Date: 20251219
  Receipt Date: 20251219
  Transmission Date: 20260117
  Serious: Yes (Other)
  Sender: ALCON
  Company Number: US-ALCON LABORATORIES-ALC2025US007577

PATIENT
  Age: 68 Year
  Sex: Male

DRUGS (1)
  1. EYSUVIS [Suspect]
     Active Substance: LOTEPREDNOL ETABONATE
     Indication: Postoperative care
     Dosage: INSTILL 1 DROP INTO THE RIGHT EYE TWICE A DAY START THE DAY AFTER SURGERY
     Route: 047
     Dates: start: 20250630

REACTIONS (3)
  - Corneal graft rejection [Unknown]
  - Drug ineffective [Unknown]
  - Product use in unapproved indication [Unknown]
